FAERS Safety Report 4618771-8 (Version None)
Quarter: 2005Q1

REPORT INFORMATION
  Report Type: 
  Country: None (occurrence: None)
  Receive Date: 20050323
  Receipt Date: 20050311
  Transmission Date: 20050727
  Serious: Yes (Other)
  Sender: FDA-Public Use
  Company Number: 2005044427

PATIENT
  Age: 65 Year
  Sex: Female
  Weight: 73.9363 kg

DRUGS (6)
  1. NEURONTIN [Suspect]
     Indication: NEUROPATHY PERIPHERAL
     Dosage: 1800 MG (600 MG, 3 IN 1 D), ORAL
     Route: 048
     Dates: end: 20050201
  2. CONJUGATED ESTROGENS [Concomitant]
  3. ALL OTHER THERAPEUTIC PRODUCTS (ALL OTHER THERAPEUTIC PRODUCTS) [Concomitant]
  4. LEVOTHYROXINE SODIUM [Concomitant]
  5. LOTREL [Concomitant]
  6. BISOPROLOL FUMARATE AND HYDROCHLOROTHIAZIDE [Concomitant]

REACTIONS (7)
  - BITE [None]
  - DRUG DEPENDENCE [None]
  - DRUG WITHDRAWAL SYNDROME [None]
  - GENERALISED OEDEMA [None]
  - NASOPHARYNGITIS [None]
  - PERSONALITY CHANGE [None]
  - WEIGHT DECREASED [None]
